FAERS Safety Report 23077391 (Version 2)
Quarter: 2023Q4

REPORT INFORMATION
  Report Type: Other
  Country: CN (occurrence: None)
  Receive Date: 20231018
  Receipt Date: 20231108
  Transmission Date: 20240110
  Serious: Yes (Hospitalization)
  Sender: FDA-Public Use
  Company Number: CN-ROCHE-3436782

PATIENT
  Age: 35 Year
  Sex: Female

DRUGS (5)
  1. TRASTUZUMAB [Suspect]
     Active Substance: TRASTUZUMAB
     Indication: Invasive ductal breast carcinoma
     Dosage: (11:15-12:45, 258 MG (3.6 MG/KG))
     Route: 041
     Dates: start: 20230615
  2. TRASTUZUMAB [Suspect]
     Active Substance: TRASTUZUMAB
     Dosage: 11:15-12:46, 252 MG (3.6 MG/KG)
     Route: 041
     Dates: start: 20230706
  3. TRASTUZUMAB [Suspect]
     Active Substance: TRASTUZUMAB
     Dosage: 12:10-13:00, 252 MG (3.6 MG/KG)
     Route: 041
     Dates: start: 20230728
  4. TRASTUZUMAB [Suspect]
     Active Substance: TRASTUZUMAB
     Dosage: 12:30-13:50, 254 MG (3.6 MG/KG)
     Route: 041
     Dates: start: 20230821
  5. TRASTUZUMAB [Suspect]
     Active Substance: TRASTUZUMAB
     Dosage: 10:25-11:25, 252 MG (3.6 MG/KG)
     Route: 041
     Dates: start: 20230911

REACTIONS (1)
  - Platelet count decreased [Recovered/Resolved]

NARRATIVE: CASE EVENT DATE: 20230918
